FAERS Safety Report 8567631-9 (Version None)
Quarter: 2012Q3

REPORT INFORMATION
  Report Type: 
  Country: None (occurrence: None)
  Receive Date: 20120803
  Receipt Date: 20120606
  Transmission Date: 20120928
  Serious: Yes (Death)
  Sender: FDA-Public Use
  Company Number: FR-ROCHE-1095769

PATIENT
  Sex: Male

DRUGS (6)
  1. AVASTIN [Suspect]
     Indication: COLON CANCER
     Dates: start: 20081104, end: 20090209
  2. FLUOROURACIL [Concomitant]
     Dates: start: 20090302, end: 20090512
  3. OXALIPLATIN [Concomitant]
     Dates: start: 20090302, end: 20090512
  4. XELODA [Concomitant]
     Dates: start: 20081104, end: 20090209
  5. LEUCOVORIN CALCIUM [Concomitant]
     Dates: start: 20090302, end: 20090512
  6. XELODA [Concomitant]
     Dates: start: 20080912, end: 20081103

REACTIONS (1)
  - DISEASE PROGRESSION [None]
